FAERS Safety Report 15753606 (Version 1)
Quarter: 2018Q4

REPORT INFORMATION
  Report Type: Spontaneous
  Country: US (occurrence: US)
  Receive Date: 20181222
  Receipt Date: 20181222
  Transmission Date: 20190205
  Serious: No
  Sender: FDA-Public Use
  Company Number: US-BAYER-2018-239137

PATIENT
  Age: 47 Year
  Sex: Female

DRUGS (1)
  1. BETASERON [Suspect]
     Active Substance: INTERFERON BETA-1B
     Dosage: UNK
     Route: 058
     Dates: start: 2010

REACTIONS (5)
  - Rash [None]
  - Pruritus [None]
  - Arthralgia [None]
  - Axillary pain [None]
  - Dry skin [None]

NARRATIVE: CASE EVENT DATE: 20181217
